FAERS Safety Report 9126511 (Version 1)
Quarter: 2013Q1

REPORT INFORMATION
  Report Type: Spontaneous
  Country: CO (occurrence: CO)
  Receive Date: 20130228
  Receipt Date: 20130228
  Transmission Date: 20140127
  Serious: Yes (Other)
  Sender: FDA-Public Use
  Company Number: CO-AMGEN-COLSP2013013668

PATIENT
  Age: 50 Year
  Sex: Female

DRUGS (4)
  1. ENBREL [Suspect]
     Indication: RHEUMATOID ARTHRITIS
     Dosage: 50 MG, WEEKLY
     Route: 058
     Dates: start: 2004
  2. PREDNISOLON                        /00016201/ [Concomitant]
     Indication: RHEUMATOID ARTHRITIS
     Dosage: 250 MG, 1X/DAY
     Route: 048
     Dates: start: 2004
  3. CHLOROQUINE [Concomitant]
     Indication: RHEUMATOID ARTHRITIS
     Dosage: 250 MG, 1X/DAY
     Route: 048
     Dates: start: 2004
  4. METHOTREXATE [Concomitant]
     Indication: RHEUMATOID ARTHRITIS
     Dosage: 6X/WEEK
     Route: 048
     Dates: start: 2004

REACTIONS (3)
  - Hyperthyroidism [Not Recovered/Not Resolved]
  - Skin depigmentation [Recovering/Resolving]
  - Fungal skin infection [Recovering/Resolving]
